FAERS Safety Report 9940910 (Version 1)
Quarter: 2014Q1

REPORT INFORMATION
  Report Type: Report from Study
  Country: CA (occurrence: CA)
  Receive Date: 20140303
  Receipt Date: 20140303
  Transmission Date: 20141002
  Serious: Yes (Other)
  Sender: FDA-Public Use
  Company Number: CA-JNJFOC-20140215436

PATIENT
  Age: 52 Year
  Sex: Male

DRUGS (5)
  1. SIMPONI [Suspect]
     Indication: ANKYLOSING SPONDYLITIS
     Route: 058
     Dates: start: 20130919
  2. VOLTAREN [Concomitant]
     Route: 048
  3. LOSEC [Concomitant]
     Route: 065
  4. METFORMIN [Concomitant]
     Route: 065
  5. GLYBURIDE [Concomitant]
     Route: 065

REACTIONS (1)
  - Mass [Not Recovered/Not Resolved]
